FAERS Safety Report 8366913-3 (Version None)
Quarter: 2012Q2

REPORT INFORMATION
  Report Type: 
  Country: None (occurrence: None)
  Receive Date: 20120515
  Receipt Date: 20120515
  Transmission Date: 20120825
  Serious: Yes (Disabling, Other)
  Sender: FDA-Public Use
  Company Number: None

PATIENT
  Age: 53 Year
  Sex: Female
  Weight: 55.7924 kg

DRUGS (1)
  1. RECLAST [Suspect]
     Indication: OSTEOPOROSIS

REACTIONS (16)
  - DIZZINESS [None]
  - CHEST PAIN [None]
  - VULVOVAGINAL PAIN [None]
  - NAUSEA [None]
  - STOMATITIS [None]
  - INFLUENZA LIKE ILLNESS [None]
  - EAR CONGESTION [None]
  - MYALGIA [None]
  - EAR PAIN [None]
  - HEADACHE [None]
  - LYMPHADENOPATHY [None]
  - ARTHRALGIA [None]
  - DYSPHAGIA [None]
  - MUSCULOSKELETAL PAIN [None]
  - PAIN IN EXTREMITY [None]
  - PAIN IN JAW [None]
